FAERS Safety Report 5586853-2 (Version None)
Quarter: 2008Q1

REPORT INFORMATION
  Report Type: 
  Country: None (occurrence: None)
  Receive Date: 20080110
  Receipt Date: 20061205
  Transmission Date: 20080703
  Serious: Yes (Hospitalization)
  Sender: FDA-Public Use
  Company Number: US-BRISTOL-MYERS SQUIBB COMPANY-13602750

PATIENT
  Sex: Female

DRUGS (3)
  1. CISPLATIN [Suspect]
     Indication: BLADDER CANCER
     Dates: start: 20061120, end: 20061120
  2. GEMZAR [Suspect]
     Dates: start: 20061127, end: 20061127
  3. ROCEPHIN [Concomitant]
     Dates: start: 20061127, end: 20061127

REACTIONS (1)
  - EXTRAVASATION [None]
